FAERS Safety Report 6532149-1 (Version None)
Quarter: 2010Q1

REPORT INFORMATION
  Report Type: 
  Country: None (occurrence: None)
  Receive Date: 20100108
  Receipt Date: 20100106
  Transmission Date: 20100710
  Serious: Yes (Other)
  Sender: FDA-Public Use
  Company Number: US-TEVA-214061USA

PATIENT

DRUGS (5)
  1. METHOTREXATE [Suspect]
     Indication: RHEUMATOID ARTHRITIS
     Dates: end: 20090908
  2. ABATACEPT [Suspect]
     Indication: RHEUMATOID ARTHRITIS
     Route: 058
     Dates: start: 20081013, end: 20090908
  3. SULTOPRIDE [Concomitant]
     Dates: start: 20070614
  4. DEXAMETHASONE [Concomitant]
     Dates: start: 20070509
  5. BENAZEPRIL HYDROCHLORIDE [Concomitant]
     Dates: start: 19980101

REACTIONS (1)
  - BREAST CANCER [None]
